FAERS Safety Report 5012418-7 (Version None)
Quarter: 2006Q2

REPORT INFORMATION
  Report Type: 
  Country: None (occurrence: None)
  Receive Date: 20060411
  Receipt Date: 20051212
  Transmission Date: 20061013
  Serious: No
  Sender: FDA-Public Use
  Company Number: 2005S1000270

PATIENT
  Age: 50 Year
  Sex: Female
  Weight: 118 kg

DRUGS (1)
  1. CUBICIN [Suspect]
     Dosage: 500 MG;Q24H;IV
     Route: 042
     Dates: start: 20041203, end: 20051203

REACTIONS (2)
  - CHILLS [None]
  - DYSPNOEA [None]
